FAERS Safety Report 23528732 (Version 2)
Quarter: 2024Q1

REPORT INFORMATION
  Report Type: Report from Study
  Country: US (occurrence: US)
  Receive Date: 20240215
  Receipt Date: 20240304
  Transmission Date: 20240410
  Serious: Yes (Hospitalization, Other)
  Sender: FDA-Public Use
  Company Number: US-ABBVIE-5634094

PATIENT
  Sex: Female

DRUGS (3)
  1. HUMIRA [Suspect]
     Active Substance: ADALIMUMAB
     Indication: Product used for unknown indication
     Dosage: CITRATE FREE?FORM STRENGTH: 40 MILLIGRAM
     Route: 058
     Dates: end: 202310
  2. HUMIRA [Suspect]
     Active Substance: ADALIMUMAB
     Dosage: CITRATE FREE?FORM STRENGTH: 40 MILLIGRAM
     Route: 058
     Dates: start: 20231024
  3. HUMIRA [Suspect]
     Active Substance: ADALIMUMAB
     Dosage: CITRATE FREE?FORM STRENGTH: 40 MILLIGRAM
     Route: 058
     Dates: start: 20200210

REACTIONS (9)
  - Surgery [Not Recovered/Not Resolved]
  - Arthritis [Unknown]
  - Back pain [Unknown]
  - Condition aggravated [Unknown]
  - Hidradenitis [Unknown]
  - Furuncle [Unknown]
  - Illness [Unknown]
  - Blister [Unknown]
  - Arthralgia [Unknown]

NARRATIVE: CASE EVENT DATE: 20200101
